FAERS Safety Report 8012623-1 (Version None)
Quarter: 2011Q4

REPORT INFORMATION
  Report Type: 
  Country: None (occurrence: None)
  Receive Date: 20111229
  Receipt Date: 20111216
  Transmission Date: 20120403
  Serious: No
  Sender: FDA-Public Use
  Company Number: CA-JNJFOC-20111208602

PATIENT
  Sex: Female
  Weight: 59.1 kg

DRUGS (3)
  1. VENTOLIN [Concomitant]
     Route: 065
  2. REMICADE [Suspect]
     Indication: CROHN'S DISEASE
     Route: 042
     Dates: start: 20110901
  3. IMURAN [Concomitant]
     Route: 065

REACTIONS (1)
  - FUNGAL INFECTION [None]
